FAERS Safety Report 5183560-5 (Version None)
Quarter: 2006Q4

REPORT INFORMATION
  Report Type: 
  Country: None (occurrence: None)
  Receive Date: 20061220
  Receipt Date: 20060123
  Transmission Date: 20070319
  Serious: No
  Sender: FDA-Public Use
  Company Number: US-GLAXOSMITHKLINE-A0590374A

PATIENT
  Age: 70 Year

DRUGS (1)
  1. NICODERM CQ [Suspect]

REACTIONS (3)
  - ASTHENIA [None]
  - DEPRESSED MOOD [None]
  - HEAD DISCOMFORT [None]
